FAERS Safety Report 13151572 (Version 1)
Quarter: 2017Q1

REPORT INFORMATION
  Report Type: Spontaneous
  Country: US (occurrence: US)
  Receive Date: 20170125
  Receipt Date: 20170125
  Transmission Date: 20170428
  Serious: Yes (Other)
  Sender: FDA-Public Use
  Company Number: US-DRREDDYS-USA/USA/17/0086434

PATIENT
  Age: 91 Year
  Sex: Male

DRUGS (3)
  1. ACETYLSALICYLIC ACID [Suspect]
     Active Substance: ASPIRIN
     Indication: ANTIPLATELET THERAPY
     Route: 048
  2. WARFARIN [Suspect]
     Active Substance: WARFARIN
     Indication: ATRIAL FIBRILLATION
     Route: 048
  3. CLOPIDOGREL BISULFATE. [Suspect]
     Active Substance: CLOPIDOGREL BISULFATE
     Indication: ANTIPLATELET THERAPY
     Route: 048

REACTIONS (9)
  - Haemoglobin decreased [Unknown]
  - Polyp [Unknown]
  - Hypotension [Unknown]
  - Oesophagitis [Unknown]
  - Atrial fibrillation [Unknown]
  - International normalised ratio increased [Unknown]
  - Melaena [Unknown]
  - Fatigue [Unknown]
  - Asthenia [Unknown]
